FAERS Safety Report 7958893-7 (Version None)
Quarter: 2011Q4

REPORT INFORMATION
  Report Type: 
  Country: None (occurrence: None)
  Receive Date: 20111130
  Receipt Date: 20111116
  Transmission Date: 20120403
  Serious: Yes (Hospitalization)
  Sender: FDA-Public Use
  Company Number: TPA2011A07758

PATIENT
  Age: 21 Month
  Sex: Male

DRUGS (1)
  1. PREVACID [Suspect]
     Indication: GASTROOESOPHAGEAL REFLUX DISEASE
     Dosage: 30 MG
     Dates: start: 20110101

REACTIONS (3)
  - VOMITING [None]
  - RESPIRATORY TRACT INFECTION VIRAL [None]
  - ABDOMINAL DISCOMFORT [None]
